FAERS Safety Report 4832216-4 (Version None)
Quarter: 2005Q4

REPORT INFORMATION
  Report Type: 
  Country: None (occurrence: None)
  Receive Date: 20051118
  Receipt Date: 20051110
  Transmission Date: 20060501
  Serious: Yes (Other)
  Sender: FDA-Public Use
  Company Number: US-MERCK-0511USA01906

PATIENT
  Age: 78 Year
  Sex: Female
  Weight: 100 kg

DRUGS (14)
  1. VIOXX [Suspect]
     Indication: BACK PAIN
     Route: 048
     Dates: start: 20001127, end: 20021030
  2. VIOXX [Suspect]
     Route: 048
     Dates: start: 20001127, end: 20021030
  3. VIOXX [Suspect]
     Indication: PAIN IN EXTREMITY
     Route: 048
     Dates: start: 20001127, end: 20021030
  4. VIOXX [Suspect]
     Route: 048
     Dates: start: 20001127, end: 20021030
  5. ASPIRIN [Concomitant]
     Route: 065
  6. COUMADIN [Concomitant]
     Route: 065
  7. METOPROLOL [Concomitant]
     Route: 065
  8. SYNTHROID [Concomitant]
     Route: 065
  9. PRINIVIL [Concomitant]
     Route: 065
  10. NEURONTIN [Concomitant]
     Route: 065
  11. NORVASC [Concomitant]
     Route: 065
  12. ZOCOR [Concomitant]
     Route: 065
  13. ZANTAC [Concomitant]
     Route: 065
  14. DARVOCET-N 100 [Concomitant]
     Route: 065

REACTIONS (3)
  - CEREBROVASCULAR ACCIDENT [None]
  - GASTROINTESTINAL HAEMORRHAGE [None]
  - MYOCARDIAL INFARCTION [None]
